FAERS Safety Report 4510026-5 (Version None)
Quarter: 2004Q4

REPORT INFORMATION
  Report Type: 
  Country: None (occurrence: None)
  Receive Date: 20041119
  Receipt Date: 20041105
  Transmission Date: 20050328
  Serious: Yes (Hospitalization)
  Sender: FDA-Public Use
  Company Number: US-2004-032423

PATIENT
  Age: 52 Year
  Sex: Female

DRUGS (6)
  1. ULTRAVIST 300 [Suspect]
     Indication: COMPUTERISED TOMOGRAM
     Dosage: SEE IMAGE
     Route: 042
     Dates: start: 20040923, end: 20040923
  2. ULTRAVIST 300 [Suspect]
  3. TOPROL-XL [Concomitant]
  4. FOSAMAX [Concomitant]
  5. PREVACID [Concomitant]
  6. CALCIUM (CALCIUM) [Concomitant]

REACTIONS (4)
  - CONTRAST MEDIA REACTION [None]
  - INJECTION SITE EXTRAVASATION [None]
  - INJECTION SITE VESICLES [None]
  - URTICARIA GENERALISED [None]
